FAERS Safety Report 25442948 (Version 3)
Quarter: 2025Q3

REPORT INFORMATION
  Report Type: Report from Study
  Country: US (occurrence: US)
  Receive Date: 20250617
  Receipt Date: 20250810
  Transmission Date: 20251020
  Serious: Yes (Other)
  Sender: ALEXION PHARMACEUTICALS
  Company Number: US-AstraZeneca-CH-00888951A

PATIENT
  Sex: Male

DRUGS (11)
  1. DAPAGLIFLOZIN [Suspect]
     Active Substance: DAPAGLIFLOZIN
     Route: 065
  2. LIPITOR [Concomitant]
     Active Substance: ATORVASTATIN CALCIUM
  3. WELLBUTRIN XL [Concomitant]
     Active Substance: BUPROPION HYDROCHLORIDE
  4. COREG [Concomitant]
     Active Substance: CARVEDILOL
  5. PLAVIX [Concomitant]
     Active Substance: CLOPIDOGREL BISULFATE
  6. COLACE [Concomitant]
     Active Substance: DOCUSATE SODIUM
  7. TRULICITY [Concomitant]
     Active Substance: DULAGLUTIDE
  8. LEXAPRO [Concomitant]
     Active Substance: ESCITALOPRAM OXALATE
  9. ZETIA [Concomitant]
     Active Substance: EZETIMIBE
  10. LASIX [Concomitant]
     Active Substance: FUROSEMIDE
  11. Neurotin [Concomitant]

REACTIONS (1)
  - Cerebrovascular accident [Unknown]
